FAERS Safety Report 20769880 (Version 1)
Quarter: 2022Q2

REPORT INFORMATION
  Report Type: Spontaneous
  Country: DE (occurrence: DE)
  Receive Date: 20220429
  Receipt Date: 20220429
  Transmission Date: 20220721
  Serious: Yes (Other)
  Sender: FDA-Public Use
  Company Number: DE-AMGEN-DEUSP2022070101

PATIENT
  Sex: Female

DRUGS (13)
  1. PROLIA [Suspect]
     Active Substance: DENOSUMAB
     Indication: Osteoporosis
     Dosage: UNK
     Route: 065
  2. HYDROCHLOROTHIAZIDE\IRBESARTAN [Concomitant]
     Active Substance: HYDROCHLOROTHIAZIDE\IRBESARTAN
  3. METOPROLOL [Concomitant]
     Active Substance: METOPROLOL
  4. MOXONIDINE [Concomitant]
     Active Substance: MOXONIDINE
  5. NIFEDIPINE [Concomitant]
     Active Substance: NIFEDIPINE
  6. PANTOPRAZOLE [Concomitant]
     Active Substance: PANTOPRAZOLE
  7. PRAMIPEXOLE DIHYDROCHLORIDE [Concomitant]
     Active Substance: PRAMIPEXOLE DIHYDROCHLORIDE
     Indication: Restless legs syndrome
  8. MESALAMINE [Concomitant]
     Active Substance: MESALAMINE
  9. TRAMADOL [Concomitant]
     Active Substance: TRAMADOL
     Indication: Pain
  10. TORSEMIDE [Concomitant]
     Active Substance: TORSEMIDE
  11. SPIRONOLACTONE [Concomitant]
     Active Substance: SPIRONOLACTONE
  12. PREGABALIN [Concomitant]
     Active Substance: PREGABALIN
  13. XARELTO [Concomitant]
     Active Substance: RIVAROXABAN

REACTIONS (1)
  - Skin ulcer [Unknown]

NARRATIVE: CASE EVENT DATE: 20220201
